FAERS Safety Report 8493534-4 (Version None)
Quarter: 2012Q2

REPORT INFORMATION
  Report Type: 
  Country: None (occurrence: None)
  Receive Date: 20120402
  Receipt Date: 20101119
  Transmission Date: 20120825
  Serious: Yes (Disabling)
  Sender: FDA-Public Use
  Company Number: PHHY2010US73033

PATIENT
  Age: 79 Year
  Sex: Female
  Weight: 64.4 kg

DRUGS (4)
  1. ASPIRIN [Concomitant]
  2. EXFORGE HCT [Suspect]
     Indication: MALIGNANT HYPERTENSION
     Dosage: 5/60/12.5 MG, ORAL
     Route: 048
     Dates: start: 20100802, end: 20100823
  3. DIOVAN HCT [Concomitant]
  4. ALENDRONATE SODIUM [Concomitant]

REACTIONS (2)
  - OEDEMA PERIPHERAL [None]
  - JOINT SWELLING [None]
